FAERS Safety Report 12210408 (Version 1)
Quarter: 2016Q1

REPORT INFORMATION
  Report Type: Spontaneous
  Country: US (occurrence: US)
  Receive Date: 20160325
  Receipt Date: 20160325
  Transmission Date: 20160526
  Serious: No
  Sender: FDA-Public Use
  Company Number: US-ASTRAZENECA-2016SE17676

PATIENT
  Sex: Female
  Weight: 56.7 kg

DRUGS (6)
  1. FLOVENT [Concomitant]
     Active Substance: FLUTICASONE PROPIONATE
     Indication: ASTHMA
  2. ASIPHEX [Concomitant]
     Indication: GASTROOESOPHAGEAL REFLUX DISEASE
  3. SINGULAIR [Concomitant]
     Active Substance: MONTELUKAST SODIUM
     Indication: ASTHMA
  4. VENTOLIN [Concomitant]
     Active Substance: ALBUTEROL SULFATE
     Indication: ASTHMA
     Dosage: AS REQUIRED
  5. RHINOCORT AQUA [Suspect]
     Active Substance: BUDESONIDE
     Indication: PROPHYLAXIS
     Dosage: 32 MCG 1 SPRAY PER NOSTRIL TWICE DAILY
     Route: 045
     Dates: start: 2015
  6. ASIPHEX [Concomitant]
     Indication: GASTROOESOPHAGEAL REFLUX DISEASE

REACTIONS (3)
  - Eye irritation [Unknown]
  - Product use issue [Unknown]
  - Off label use [Unknown]
